FAERS Safety Report 14146104 (Version 2)
Quarter: 2018Q1

REPORT INFORMATION
  Report Type: Spontaneous
  Country: FR (occurrence: FR)
  Receive Date: 20171031
  Receipt Date: 20180226
  Transmission Date: 20180508
  Serious: Yes (Other)
  Sender: FDA-Public Use
  Company Number: FR-SA-2017SA196939

PATIENT
  Age: 45 Year
  Sex: Male

DRUGS (4)
  1. TRENBOLONE [Concomitant]
     Active Substance: TRENBOLONE
     Route: 065
  2. CLOMIFENE CITRATE [Suspect]
     Active Substance: CLOMIPHENE
     Indication: BLOOD TESTOSTERONE DECREASED
     Route: 048
  3. SUSTANON [Concomitant]
     Active Substance: TESTOSTERONE
     Route: 065
  4. OXANDROLONE. [Concomitant]
     Active Substance: OXANDROLONE
     Route: 065

REACTIONS (8)
  - Dyshidrotic eczema [Recovering/Resolving]
  - Epidermal necrosis [Recovering/Resolving]
  - Intentional product misuse [Unknown]
  - Toxic skin eruption [Recovering/Resolving]
  - Rash maculo-papular [Recovering/Resolving]
  - Hyperkeratosis [Recovering/Resolving]
  - Eczema [Recovering/Resolving]
  - Eosinophilia [Recovering/Resolving]
